FAERS Safety Report 6288969-4 (Version None)
Quarter: 2009Q3

REPORT INFORMATION
  Report Type: 
  Country: None (occurrence: None)
  Receive Date: 20090729
  Receipt Date: 20070713
  Transmission Date: 20100115
  Serious: Yes (Other)
  Sender: FDA-Public Use
  Company Number: US-ASTRAZENECA-2006UW27662

PATIENT
  Age: 38 Year
  Sex: Female
  Weight: 72.7 kg

DRUGS (29)
  1. SEROQUEL [Suspect]
     Indication: DEPRESSION
     Route: 048
     Dates: start: 20030101, end: 20071212
  2. SEROQUEL [Suspect]
     Indication: SCHIZOPHRENIA
     Route: 048
     Dates: start: 20030101, end: 20071212
  3. SEROQUEL [Suspect]
     Route: 048
     Dates: start: 20031119
  4. SEROQUEL [Suspect]
     Route: 048
     Dates: start: 20031119
  5. ABILIFY [Concomitant]
  6. TRAZODONE HCL [Concomitant]
     Dosage: 50 MG TO 150 MG
     Dates: start: 20030101
  7. ZYPREXA [Concomitant]
     Dates: start: 20020124, end: 20031204
  8. ZYPREXA [Concomitant]
  9. RISPERDAL [Concomitant]
     Dates: start: 20021007, end: 20050815
  10. ALBUTEROL SULFATE [Concomitant]
     Indication: DYSPNOEA
  11. METFORMIN [Concomitant]
  12. KEPPRA [Concomitant]
  13. PREVACID [Concomitant]
  14. SINGULAIR [Concomitant]
  15. PAXIL [Concomitant]
  16. DILANTIN [Concomitant]
  17. ZOLPIDEM [Concomitant]
  18. CITALOPRAM HYDROCHLORIDE [Concomitant]
  19. DARVOCET [Concomitant]
  20. GEODON [Concomitant]
  21. LAMICTAL [Concomitant]
  22. LISINOPRIL [Concomitant]
  23. LIPITOR [Concomitant]
  24. ADVAIR HFA [Concomitant]
  25. BROMOCRIPTINE MESYLATE [Concomitant]
  26. TRILEPTAL [Concomitant]
  27. SANCTURA [Concomitant]
  28. PLAVIX [Concomitant]
  29. DETROL [Concomitant]

REACTIONS (4)
  - CONVULSION [None]
  - DIABETES MELLITUS [None]
  - DIABETIC NEUROPATHY [None]
  - EPILEPSY [None]
